FAERS Safety Report 4822945-0 (Version None)
Quarter: 2005Q4

REPORT INFORMATION
  Report Type: 
  Country: None (occurrence: None)
  Receive Date: 20051108
  Receipt Date: 20050309
  Transmission Date: 20060501
  Serious: Yes (Hospitalization)
  Sender: FDA-Public Use
  Company Number: JP-NOVOPROD-242834

PATIENT
  Age: 4 Year
  Sex: Female
  Weight: 11 kg

DRUGS (5)
  1. NORDITROPIN [Suspect]
     Indication: SMALL FOR DATES BABY
     Dosage: .033 MG/KG, QD
     Route: 058
     Dates: start: 20040317, end: 20050611
  2. ASVERIN [Concomitant]
     Dosage: POWDER
     Dates: start: 20050217, end: 20050322
  3. MUCODYNE [Concomitant]
     Dates: start: 20050217, end: 20050322
  4. HOKUNALIN [Concomitant]
     Dates: start: 20050217, end: 20050322
  5. THEO-DUR [Concomitant]
     Dates: start: 20041224, end: 20050307

REACTIONS (3)
  - JOINT DISLOCATION [None]
  - TORTICOLLIS [None]
  - VARICELLA [None]
